FAERS Safety Report 6073921-4 (Version None)
Quarter: 2009Q1

REPORT INFORMATION
  Report Type: 
  Country: None (occurrence: None)
  Receive Date: 20090211
  Receipt Date: 20090113
  Transmission Date: 20090719
  Serious: Yes (Hospitalization, Other)
  Sender: FDA-Public Use
  Company Number: US-MERCK-0810USA04874

PATIENT
  Age: 76 Year
  Sex: Female

DRUGS (2)
  1. FOSAMAX [Suspect]
     Indication: OSTEOPOROSIS
     Route: 048
     Dates: start: 19990101, end: 20060501
  2. FOSAMAX [Suspect]
     Route: 048
     Dates: end: 19990101

REACTIONS (11)
  - ABSCESS [None]
  - ABSCESS ORAL [None]
  - ANXIETY [None]
  - ARTHROPATHY [None]
  - DEPRESSION [None]
  - FISTULA [None]
  - NASAL DISORDER [None]
  - NERVOUS SYSTEM DISORDER [None]
  - OSTEONECROSIS [None]
  - SINUS DISORDER [None]
  - SKIN CANCER [None]
